FAERS Safety Report 8493603 (Version 2)
Quarter: 2012Q4

REPORT INFORMATION
  Report Type: 
  Country: US (occurrence: US)
  Receive Date: 20120404
  Receipt Date: 20121226
  Transmission Date: 20130627
  Serious: Yes (Other)
  Sender: FDA-Public Use
  Company Number: US-BAYER-2012-030995

PATIENT
  Age: 35 Year
  Sex: Female
  Weight: 70.3 kg

DRUGS (1)
  1. MIRENA [Suspect]
     Indication: CONTRACEPTION
     Dosage: 20 mcg/24hr, CONT
     Route: 015
     Dates: start: 20080324

REACTIONS (6)
  - Pregnancy with contraceptive device [None]
  - Genital haemorrhage [None]
  - Abortion missed [None]
  - Nausea [None]
  - Drug ineffective [None]
  - Amenorrhoea [None]
